FAERS Safety Report 6224664-5 (Version None)
Quarter: 2009Q2

REPORT INFORMATION
  Report Type: 
  Country: None (occurrence: None)
  Receive Date: 20090612
  Receipt Date: 20090413
  Transmission Date: 20091009
  Serious: Yes (Hospitalization)
  Sender: FDA-Public Use
  Company Number: US-ABBOTT-09P-163-0564738-00

PATIENT
  Sex: Male
  Weight: 136.2 kg

DRUGS (3)
  1. HUMIRA [Suspect]
     Indication: CROHN'S DISEASE
     Dates: start: 20090225, end: 20090225
  2. HUMIRA [Suspect]
     Dates: start: 20090312, end: 20090312
  3. HUMIRA [Suspect]
     Dates: start: 20090323, end: 20090408

REACTIONS (5)
  - ABDOMINAL PAIN [None]
  - CROHN'S DISEASE [None]
  - DIARRHOEA [None]
  - HAEMATOCHEZIA [None]
  - NAUSEA [None]
